FAERS Safety Report 8784921 (Version 2)
Quarter: 2012Q4

REPORT INFORMATION
  Report Type: 
  Country: GB (occurrence: GB)
  Receive Date: 20120914
  Receipt Date: 20120917
  Transmission Date: 20130627
  Serious: Yes (Life-Threatening, Hospitalization)
  Sender: FDA-Public Use
  Company Number: GB-PFIZER INC-K200800028

PATIENT
  Age: 36 Year
  Sex: Female
  Weight: 47 kg

DRUGS (4)
  1. MORPHINE SULFATE [Suspect]
     Indication: LABOUR PAIN
     Dosage: 10 mg, single
     Route: 030
  2. MAGNESIUM SULFATE [Interacting]
     Indication: PRE-ECLAMPSIA
     Dosage: 5 g, UNK
     Route: 042
  3. MAGNESIUM SULFATE [Interacting]
     Indication: PROTEINURIA
     Dosage: 1 g/h
     Route: 042
  4. LABETALOL [Concomitant]
     Indication: HYPERTENSION
     Dosage: UNK

REACTIONS (12)
  - Unresponsive to stimuli [Recovered/Resolved]
  - Respiratory depression [Recovered/Resolved]
  - Miosis [Recovered/Resolved]
  - Somnolence [Recovered/Resolved]
  - Potentiating drug interaction [Recovered/Resolved]
  - Pre-eclampsia [Recovered/Resolved]
  - Respiratory acidosis [Recovered/Resolved]
  - Oxygen saturation decreased [Recovered/Resolved]
  - Blood pressure increased [Recovered/Resolved]
  - Proteinuria [Recovered/Resolved]
  - Respiratory rate decreased [Recovered/Resolved]
  - Toxicity to various agents [Recovered/Resolved]
